FAERS Safety Report 5663640-8 (Version None)
Quarter: 2008Q1

REPORT INFORMATION
  Report Type: 
  Country: None (occurrence: None)
  Receive Date: 20080307
  Receipt Date: 20080220
  Transmission Date: 20080703
  Serious: Yes (Other)
  Sender: FDA-Public Use
  Company Number: GB-DEXPHARM-20080141

PATIENT
  Age: 33 Year
  Sex: Female

DRUGS (3)
  1. DICLOFLEX 50 MG [Suspect]
     Indication: INTERVERTEBRAL DISC PROTRUSION
     Dosage: ^3/1 DAYS^ (50 MG MILLIGRAM(S))
     Route: 048
     Dates: start: 20080123, end: 20080123
  2. CO-CODAMOL [Concomitant]
  3. ACETAMINOPHEN [Concomitant]

REACTIONS (2)
  - ANAPHYLACTIC REACTION [None]
  - PAIN IN EXTREMITY [None]
